FAERS Safety Report 8317028-1 (Version None)
Quarter: 2012Q2

REPORT INFORMATION
  Report Type: 
  Country: None (occurrence: None)
  Receive Date: 20120427
  Receipt Date: 20120423
  Transmission Date: 20120825
  Serious: Yes (Other)
  Sender: FDA-Public Use
  Company Number: US-PFIZER INC-2012100591

PATIENT
  Sex: Female
  Weight: 60 kg

DRUGS (2)
  1. DEPO-PROVERA [Suspect]
     Indication: ENDOMETRIOSIS
  2. DEPO-PROVERA [Suspect]
     Indication: CONTRACEPTION
     Dosage: 150 MG, ONCE IN THREE MONTHS
     Route: 030
     Dates: start: 20110527, end: 20120217

REACTIONS (21)
  - SUICIDAL IDEATION [None]
  - AGITATION [None]
  - MIGRAINE [None]
  - ALOPECIA [None]
  - HEADACHE [None]
  - DYSPHEMIA [None]
  - DEPRESSION [None]
  - ANXIETY [None]
  - PYREXIA [None]
  - CONFUSIONAL STATE [None]
  - CHEST PAIN [None]
  - PALPITATIONS [None]
  - BACK PAIN [None]
  - MOOD SWINGS [None]
  - PANIC ATTACK [None]
  - VISION BLURRED [None]
  - ABDOMINAL PAIN [None]
  - ANGER [None]
  - SLEEP DISORDER [None]
  - MYALGIA [None]
  - NIGHT SWEATS [None]
